FAERS Safety Report 8958526 (Version 1)
Quarter: 2012Q4

REPORT INFORMATION
  Report Type: Spontaneous
  Country: US (occurrence: None)
  Receive Date: 20121205
  Receipt Date: 20121205
  Transmission Date: 20130627
  Serious: No
  Sender: FDA-Public Use
  Company Number: None

PATIENT
  Sex: Female
  Weight: 68.95 kg

DRUGS (2)
  1. MELOXICAM 7.5 MG TAB [Suspect]
     Indication: PAIN IN HEEL
     Dosage: one tablet everyday with food
     Route: 048
     Dates: start: 20121117
  2. MELOXICAM 7.5 MG TAB [Suspect]
     Indication: BONE SPUR
     Dosage: one tablet everyday with food
     Route: 048
     Dates: start: 20121117

REACTIONS (5)
  - Malaise [None]
  - Blood pressure increased [None]
  - Heart rate increased [None]
  - Feeling hot [None]
  - Feeling abnormal [None]
